FAERS Safety Report 22175734 (Version 1)
Quarter: 2023Q2

REPORT INFORMATION
  Report Type: Spontaneous
  Country: US (occurrence: None)
  Receive Date: 20230404
  Receipt Date: 20230404
  Transmission Date: 20230722
  Serious: Yes (unspecified)
  Sender: FDA-Public Use
  Company Number: None

PATIENT
  Age: 63 Year
  Sex: Female
  Weight: 83.7 kg

DRUGS (7)
  1. HYDROXYUREA [Suspect]
     Active Substance: HYDROXYUREA
     Indication: Platelet count increased
  2. VITAMIN B-COMPLEX [Concomitant]
     Active Substance: DEXPANTHENOL\NIACINAMIDE\PYRIDOXINE HYDROCHLORIDE\RIBOFLAVIN 5^-PHOSPHATE SODIUM\THIAMINE HYDROCHLOR
  3. ALEVE [Concomitant]
     Active Substance: NAPROXEN SODIUM
  4. TYLENOL [Concomitant]
     Active Substance: ACETAMINOPHEN
  5. ASPIRIN [Concomitant]
     Active Substance: ASPIRIN
  6. ZINC [Concomitant]
     Active Substance: ZINC
  7. Calcium and magnisium combo [Concomitant]

REACTIONS (3)
  - Constipation [None]
  - Pruritus [None]
  - Parosmia [None]

NARRATIVE: CASE EVENT DATE: 20230327
